FAERS Safety Report 8138369-7 (Version None)
Quarter: 2012Q1

REPORT INFORMATION
  Report Type: 
  Country: None (occurrence: None)
  Receive Date: 20120215
  Receipt Date: 20120213
  Transmission Date: 20120608
  Serious: No
  Sender: FDA-Public Use
  Company Number: US-BAYER-2012-014381

PATIENT
  Age: 69 Year
  Sex: Male

DRUGS (2)
  1. LEUKINE [Suspect]
     Indication: PANCREATIC CARCINOMA
     Dosage: UNK
  2. ANTINEOPLASTIC AGENTS [Concomitant]
     Dosage: UNK UNK, OW

REACTIONS (3)
  - INFLUENZA LIKE ILLNESS [None]
  - BONE PAIN [None]
  - PYREXIA [None]
